FAERS Safety Report 8806987 (Version 2)
Quarter: 2015Q2

REPORT INFORMATION
  Report Type: Report from Study
  Country: US (occurrence: US)
  Receive Date: 20120925
  Receipt Date: 20150623
  Transmission Date: 20150821
  Serious: Yes (Death, Hospitalization, Other)
  Sender: FDA-Public Use
  Company Number: US-ROCHE-1096395

PATIENT
  Sex: Male

DRUGS (4)
  1. TARCEVA [Suspect]
     Active Substance: ERLOTINIB HYDROCHLORIDE
     Indication: MALIGNANT URINARY TRACT NEOPLASM
     Route: 048
  2. SOLU-MEDROL [Concomitant]
     Active Substance: METHYLPREDNISOLONE SODIUM SUCCINATE
     Route: 065
  3. AVASTIN [Suspect]
     Active Substance: BEVACIZUMAB
     Indication: MALIGNANT URINARY TRACT NEOPLASM
     Route: 042
     Dates: start: 20050504
  4. AVASTIN [Suspect]
     Active Substance: BEVACIZUMAB
     Route: 042

REACTIONS (20)
  - Somnolence [Unknown]
  - Dehydration [Unknown]
  - Disease progression [Unknown]
  - Constipation [Unknown]
  - Pneumonia [Unknown]
  - Anaemia [Unknown]
  - Rash [Recovered/Resolved]
  - Pain in extremity [Unknown]
  - Pyrexia [Unknown]
  - Atelectasis [Unknown]
  - Death [Fatal]
  - Fatigue [Unknown]
  - Lobar pneumonia [Unknown]
  - Nodule [Recovered/Resolved]
  - Off label use [Unknown]
  - Rash erythematous [Unknown]
  - Herpes zoster [Unknown]
  - Dyspnoea [Unknown]
  - Cerebrovascular accident [Unknown]
  - Chest pain [Recovered/Resolved]
